FAERS Safety Report 19608431 (Version 2)
Quarter: 2021Q3

REPORT INFORMATION
  Report Type: Report from Study
  Country: GB (occurrence: GB)
  Receive Date: 20210726
  Receipt Date: 20210728
  Transmission Date: 20211014
  Serious: Yes (Death)
  Sender: FDA-Public Use
  Company Number: GB-MYLANLABS-2021M1012407

PATIENT
  Age: 71 Year
  Sex: Female

DRUGS (27)
  1. PERTUZUMAB. [Suspect]
     Active Substance: PERTUZUMAB
     Dosage: 840 MILLIGRAM, Q3W
     Route: 042
     Dates: start: 20160518, end: 20160518
  2. OMEPRAZOLE. [Concomitant]
     Active Substance: OMEPRAZOLE
     Dosage: 20 MILLIGRAM, QD
     Route: 048
     Dates: start: 20160627
  3. RENNIE                             /01739201/ [Concomitant]
     Active Substance: CALCIUM CARBONATE\MAGNESIUM CARBONATE
     Indication: PRODUCT USED FOR UNKNOWN INDICATION
     Dosage: 680 MILLIGRAM AS NECESSARY
     Route: 048
     Dates: start: 20160518
  4. RENNIE                             /01739201/ [Concomitant]
     Active Substance: CALCIUM CARBONATE\MAGNESIUM CARBONATE
     Dosage: 680 MILLIGRAM AS NECESSARY
     Route: 048
     Dates: start: 20160516
  5. PANTOPRAZOLE [Concomitant]
     Active Substance: PANTOPRAZOLE
     Indication: PRODUCT USED FOR UNKNOWN INDICATION
     Dosage: UNK
     Route: 065
  6. DOCETAXEL. [Suspect]
     Active Substance: DOCETAXEL
     Indication: BREAST CANCER
     Dosage: 110 MILLIGRAM, Q3W
     Route: 042
     Dates: start: 20160609, end: 20160919
  7. DOMPERIDONE [Concomitant]
     Active Substance: DOMPERIDONE
     Indication: PRODUCT USED FOR UNKNOWN INDICATION
     Dosage: 10 MILLIGRAM, TID
     Route: 048
     Dates: start: 20160518
  8. TRASTUZUMAB. [Suspect]
     Active Substance: TRASTUZUMAB
     Indication: BREAST CANCER METASTATIC
     Dosage: 600 MILLIGRAM, Q3W
     Route: 042
     Dates: start: 20160518
  9. PERTUZUMAB. [Suspect]
     Active Substance: PERTUZUMAB
     Dosage: 420 MILLIGRAM, Q3W
     Route: 042
     Dates: start: 20160608
  10. TETRACYCLINE [Concomitant]
     Active Substance: TETRACYCLINE
     Indication: LACRIMATION INCREASED
     Dosage: 250 MILLIGRAM, TID
     Route: 033
     Dates: start: 20170327
  11. CLOPIDOGREL                        /01220704/ [Concomitant]
     Active Substance: CLOPIDOGREL BESILATE
     Indication: PRODUCT USED FOR UNKNOWN INDICATION
     Dosage: UNK
     Route: 065
  12. DOCETAXEL. [Suspect]
     Active Substance: DOCETAXEL
     Indication: BREAST CANCER METASTATIC
     Dosage: 140 MILLIGRAM, Q3W
     Route: 042
     Dates: start: 20160519, end: 20160519
  13. OMEPRAZOLE. [Concomitant]
     Active Substance: OMEPRAZOLE
     Indication: PRODUCT USED FOR UNKNOWN INDICATION
     Dosage: 20 MILLIGRAM
     Route: 048
     Dates: start: 20160518
  14. RANITIDINE. [Concomitant]
     Active Substance: RANITIDINE
     Indication: PRODUCT USED FOR UNKNOWN INDICATION
     Dosage: 150 MILLIGRAM, BID
     Route: 048
     Dates: start: 20160518
  15. ONDANSETRON [Concomitant]
     Active Substance: ONDANSETRON
     Indication: PRODUCT USED FOR UNKNOWN INDICATION
     Dosage: 8 MILLIGRAM, BID
     Route: 048
     Dates: start: 20160518
  16. CALCIUM CARBONATE. [Concomitant]
     Active Substance: CALCIUM CARBONATE
     Dosage: 680 MILLIGRAM, PRN
     Route: 048
     Dates: start: 20160518
  17. TRASTUZUMAB. [Suspect]
     Active Substance: TRASTUZUMAB
     Indication: BREAST CANCER
     Dosage: 588 MILLIGRAM, Q3W
     Route: 042
     Dates: start: 20191114
  18. PARACETAMOL [Concomitant]
     Active Substance: ACETAMINOPHEN
     Indication: PRODUCT USED FOR UNKNOWN INDICATION
     Dosage: 1 GRAM AS NECESSARY
     Route: 048
     Dates: start: 20160518
  19. ZOPICLONE [Concomitant]
     Active Substance: ZOPICLONE
     Indication: INSOMNIA
     Dosage: 3.75 MILLIGRAM, TID
     Route: 048
     Dates: start: 2016
  20. PERTUZUMAB. [Suspect]
     Active Substance: PERTUZUMAB
     Indication: BREAST CANCER
     Dosage: 840 MILLIGRAM, Q3W
     Route: 042
     Dates: start: 20160518, end: 20160518
  21. AMOXICILLIN. [Concomitant]
     Active Substance: AMOXICILLIN
     Indication: OROPHARYNGEAL PAIN
     Dosage: 250 MILLIGRAM, TID
     Route: 048
     Dates: start: 201701, end: 201701
  22. OMEPRAZOLE. [Concomitant]
     Active Substance: OMEPRAZOLE
     Dosage: 20 MILLIGRAM
     Route: 048
     Dates: start: 20160627
  23. CYSTOPURIN                         /00864101/ [Concomitant]
     Indication: CYSTITIS
     Dosage: 3 MILLIGRAM, TID
     Route: 048
     Dates: start: 20160918, end: 20160919
  24. BENZYDAMINE HYDROCHLORIDE [Concomitant]
     Active Substance: BENZYDAMINE HYDROCHLORIDE
     Indication: PRODUCT USED FOR UNKNOWN INDICATION
     Dosage: 10 MILLILITER, TID
     Route: 061
     Dates: start: 20160518
  25. IMODIUM [Concomitant]
     Active Substance: LOPERAMIDE HYDROCHLORIDE
     Indication: PRODUCT USED FOR UNKNOWN INDICATION
     Dosage: 2 MILLIGRAM AS NECESSARY
     Route: 048
     Dates: start: 20160518
  26. CHLORAMPHENICOL [Concomitant]
     Active Substance: CHLORAMPHENICOL
     Indication: LACRIMATION INCREASED
     Dosage: 1 GTT DROPS
     Route: 047
     Dates: start: 201610
  27. TRIMETHOPRIM. [Concomitant]
     Active Substance: TRIMETHOPRIM
     Indication: CYSTITIS
     Dosage: 200 MILLIGRAM, BID
     Route: 048
     Dates: start: 20160919, end: 20160922

REACTIONS (6)
  - Fatigue [Recovered/Resolved]
  - Insomnia [Recovered/Resolved]
  - Cystitis [Recovered/Resolved]
  - Lacrimation increased [Recovered/Resolved]
  - Paraesthesia [Recovered/Resolved]
  - Disease progression [Fatal]

NARRATIVE: CASE EVENT DATE: 201608
